FAERS Safety Report 5421072-1 (Version None)
Quarter: 2007Q3

REPORT INFORMATION
  Report Type: 
  Country: None (occurrence: None)
  Receive Date: 20070821
  Receipt Date: 20070810
  Transmission Date: 20080115
  Serious: Yes (Disabling)
  Sender: FDA-Public Use
  Company Number: B0482478A

PATIENT
  Age: 83 Year
  Sex: Female

DRUGS (15)
  1. VALTREX [Suspect]
     Indication: HERPES ZOSTER
     Dosage: 1000MG THREE TIMES PER DAY
     Route: 048
     Dates: start: 20070729, end: 20070731
  2. LANSOPRAZOLE [Concomitant]
     Route: 065
  3. NORVASC [Concomitant]
     Route: 048
  4. CANDESARTAN CILEXETIL [Concomitant]
     Route: 048
  5. THYRADIN-S [Concomitant]
     Route: 048
  6. FUROSEMIDE [Concomitant]
     Route: 065
  7. ALDACTONE [Concomitant]
     Route: 048
  8. ALLOPURINOL [Concomitant]
     Route: 048
  9. POLYFUL [Concomitant]
     Route: 048
  10. LOXONIN [Concomitant]
     Route: 065
  11. THEOLONG [Concomitant]
     Route: 048
  12. METHYCOBAL [Concomitant]
     Route: 065
  13. PURSENNID [Concomitant]
     Route: 048
  14. DEPAS [Concomitant]
     Route: 048
  15. HOKUNALIN [Concomitant]
     Route: 062

REACTIONS (3)
  - CONFUSIONAL STATE [None]
  - RENAL IMPAIRMENT [None]
  - RESTLESSNESS [None]
